FAERS Safety Report 8572310-8 (Version None)
Quarter: 2012Q3

REPORT INFORMATION
  Report Type: 
  Country: None (occurrence: None)
  Receive Date: 20120806
  Receipt Date: 20120730
  Transmission Date: 20120928
  Serious: Yes (Hospitalization)
  Sender: FDA-Public Use
  Company Number: IE-ELI_LILLY_AND_COMPANY-IE201205005594

PATIENT
  Sex: Female

DRUGS (11)
  1. FRUMIL [Concomitant]
  2. BUTRANS [Concomitant]
     Route: 062
  3. FORTEO [Suspect]
     Dosage: 20 UG, QD
     Route: 058
     Dates: start: 20120516
  4. PROCAL [Concomitant]
  5. FLEXERIL [Concomitant]
  6. FORTEO [Suspect]
     Indication: OSTEOPOROSIS
     Dosage: 20 UG, QD
     Route: 058
     Dates: start: 20120228
  7. SERC                               /00034201/ [Concomitant]
  8. OMEPRAZOLE [Concomitant]
  9. WARFARIN SODIUM [Concomitant]
  10. CALCIUM CARBONATE [Concomitant]
  11. LIDOCAINE [Concomitant]

REACTIONS (1)
  - SPINAL FRACTURE [None]
